FAERS Safety Report 8574947-9 (Version None)
Quarter: 2012Q2

REPORT INFORMATION
  Report Type: 
  Country: None (occurrence: None)
  Receive Date: 20120423
  Receipt Date: 20091118
  Transmission Date: 20120825
  Serious: Yes (Hospitalization, Other)
  Sender: FDA-Public Use
  Company Number: PHEH2009US15049

PATIENT
  Age: 52 Year
  Sex: Male

DRUGS (1)
  1. EXJADE [Suspect]
     Indication: IRON METABOLISM DISORDER
     Dosage: 125 MG DAILY, ORAL
     Route: 048

REACTIONS (3)
  - LIVER INJURY [None]
  - RENAL FAILURE [None]
  - LIVER TRANSPLANT [None]
